FAERS Safety Report 8271507-4 (Version None)
Quarter: 2012Q2

REPORT INFORMATION
  Report Type: 
  Country: None (occurrence: None)
  Receive Date: 20120410
  Receipt Date: 20120328
  Transmission Date: 20120825
  Serious: Yes (Death)
  Sender: FDA-Public Use
  Company Number: AU-CELGENEUS-008-50794-12033143

PATIENT
  Sex: Male
  Weight: 154 kg

DRUGS (6)
  1. VIDAZA [Suspect]
     Dosage: 170 MILLIGRAM
     Route: 058
     Dates: start: 20111013, end: 20120112
  2. METFORMIN HCL [Concomitant]
     Route: 065
  3. DILTIAZEM HCL [Concomitant]
     Route: 065
  4. ALLOPURINOL [Concomitant]
     Route: 065
  5. OLMERSARTAN [Concomitant]
     Route: 065
  6. DIGOXIN [Concomitant]
     Route: 065

REACTIONS (1)
  - CEREBRAL HAEMORRHAGE [None]
